FAERS Safety Report 12938225 (Version 1)
Quarter: 2016Q4

REPORT INFORMATION
  Report Type: Spontaneous
  Country: JP (occurrence: JP)
  Receive Date: 20161114
  Receipt Date: 20161114
  Transmission Date: 20170207
  Serious: Yes (Other)
  Sender: FDA-Public Use
  Company Number: JP-JNJFOC-20161109975

PATIENT

DRUGS (123)
  1. DIGOXIN. [Suspect]
     Active Substance: DIGOXIN
     Indication: CARDIAC FAILURE
     Route: 048
  2. EPINEPHRINE. [Suspect]
     Active Substance: EPINEPHRINE
     Indication: ASTHMA
     Route: 065
  3. ATENOLOL. [Suspect]
     Active Substance: ATENOLOL
     Indication: CARDIAC DISORDER
     Route: 065
  4. CHLORPROMAZINE. [Suspect]
     Active Substance: CHLORPROMAZINE
     Indication: PSYCHOTIC DISORDER
     Route: 065
  5. CLOMIPRAMINE [Suspect]
     Active Substance: CLOMIPRAMINE
     Indication: PSYCHOTIC DISORDER
     Route: 065
  6. PROTRIPTYLINE [Suspect]
     Active Substance: PROTRIPTYLINE
     Indication: PSYCHOTIC DISORDER
     Route: 065
  7. ARSENIC TRIOXIDE [Suspect]
     Active Substance: ARSENIC TRIOXIDE
     Indication: NEOPLASM MALIGNANT
     Route: 042
  8. LEVETIRACETAM. [Suspect]
     Active Substance: LEVETIRACETAM
     Indication: SEIZURE
     Route: 065
  9. DONEPEZIL. [Suspect]
     Active Substance: DONEPEZIL
     Indication: DEMENTIA ALZHEIMER^S TYPE
     Route: 048
  10. DIPHENHYDRAMINE. [Suspect]
     Active Substance: DIPHENHYDRAMINE
     Indication: HYPERSENSITIVITY
     Route: 065
  11. SIBUTRAMINE [Suspect]
     Active Substance: SIBUTRAMINE
     Indication: OBESITY
     Route: 065
  12. PROBUCOL [Suspect]
     Active Substance: PROBUCOL
     Indication: HYPERLIPIDAEMIA
     Route: 065
  13. TOLTERODINE [Suspect]
     Active Substance: TOLTERODINE
     Indication: HYPERTONIC BLADDER
     Route: 065
  14. AMIODARONE [Suspect]
     Active Substance: AMIODARONE
     Indication: ARRHYTHMIA
     Route: 042
  15. APRINDINE [Suspect]
     Active Substance: APRINDINE
     Indication: ARRHYTHMIA
     Route: 042
  16. LIDOCAINE. [Suspect]
     Active Substance: LIDOCAINE
     Indication: ARRHYTHMIA
     Route: 065
  17. OLANZAPINE. [Suspect]
     Active Substance: OLANZAPINE
     Indication: PSYCHOTIC DISORDER
     Route: 030
  18. NICARDIPINE [Suspect]
     Active Substance: NICARDIPINE
     Indication: HYPERTENSION
     Route: 065
  19. MEXILETINE [Suspect]
     Active Substance: MEXILETINE
     Indication: ARRHYTHMIA
     Route: 065
  20. PROCAINAMIDE [Suspect]
     Active Substance: PROCAINAMIDE HYDROCHLORIDE
     Indication: ARRHYTHMIA
     Route: 065
  21. NIFEKALANT [Suspect]
     Active Substance: NIFEKALANT
     Indication: ARRHYTHMIA
     Route: 042
  22. HALOPERIDOL. [Suspect]
     Active Substance: HALOPERIDOL
     Indication: PSYCHOTIC DISORDER
     Route: 048
  23. DOXEPIN [Suspect]
     Active Substance: DOXEPIN
     Indication: PSYCHOTIC DISORDER
     Route: 065
  24. PIMOZIDE. [Suspect]
     Active Substance: PIMOZIDE
     Indication: PSYCHOTIC DISORDER
     Route: 065
  25. ERYTHROMYCIN. [Suspect]
     Active Substance: ERYTHROMYCIN
     Indication: ANTIBIOTIC PROPHYLAXIS
     Route: 065
  26. FLUCONAZOLE. [Suspect]
     Active Substance: FLUCONAZOLE
     Indication: BACTERIAL INFECTION
     Route: 065
  27. GARENOXACIN [Suspect]
     Active Substance: GARENOXACIN
     Indication: ANTIBIOTIC PROPHYLAXIS
     Route: 048
  28. LEVOFLOXACIN. [Suspect]
     Active Substance: LEVOFLOXACIN
     Indication: ANTIBIOTIC PROPHYLAXIS
     Route: 065
  29. NILOTINIB [Suspect]
     Active Substance: NILOTINIB
     Indication: NEOPLASM MALIGNANT
     Route: 048
  30. PRIMIDONE. [Suspect]
     Active Substance: PRIMIDONE
     Indication: EPILEPSY
     Route: 065
  31. SOLIFENACIN [Suspect]
     Active Substance: SOLIFENACIN
     Indication: HYPERTONIC BLADDER
     Route: 065
  32. HYDROXYZINE [Suspect]
     Active Substance: HYDROXYZINE\HYDROXYZINE HYDROCHLORIDE
     Indication: HYPERSENSITIVITY
     Route: 065
  33. CHLOROQUINE. [Suspect]
     Active Substance: CHLOROQUINE
     Indication: MALARIA
     Route: 065
  34. CISAPRIDE [Suspect]
     Active Substance: CISAPRIDE
     Indication: GASTROOESOPHAGEAL REFLUX DISEASE
     Route: 065
  35. CIBENZOLINE [Suspect]
     Active Substance: CIFENLINE
     Indication: ARRHYTHMIA
     Route: 042
  36. PIRMENOL [Suspect]
     Active Substance: PIRMENOL
     Indication: ARRHYTHMIA
     Route: 065
  37. AMIODARONE [Suspect]
     Active Substance: AMIODARONE
     Indication: ARRHYTHMIA
     Route: 048
  38. CLOZAPINE. [Suspect]
     Active Substance: CLOZAPINE
     Indication: PSYCHOTIC DISORDER
     Route: 065
  39. PROCHLORPERAZINE. [Suspect]
     Active Substance: PROCHLORPERAZINE
     Indication: PSYCHOTIC DISORDER
     Route: 065
  40. TRIMIPRAMINE [Suspect]
     Active Substance: TRIMIPRAMINE
     Indication: PSYCHOTIC DISORDER
     Route: 065
  41. OLANZAPINE. [Suspect]
     Active Substance: OLANZAPINE
     Indication: PSYCHOTIC DISORDER
     Route: 048
  42. CARBAMAZEPINE. [Suspect]
     Active Substance: CARBAMAZEPINE
     Indication: EPILEPSY
     Route: 065
  43. FEXOFENADINE [Suspect]
     Active Substance: FEXOFENADINE\FEXOFENADINE HYDROCHLORIDE
     Indication: HYPERSENSITIVITY
     Route: 065
  44. FENFLURAMINE [Suspect]
     Active Substance: FENFLURAMINE
     Indication: OBESITY
     Route: 065
  45. PHENTERMINE. [Suspect]
     Active Substance: PHENTERMINE
     Indication: OBESITY
     Route: 065
  46. AMPHETAMINE [Suspect]
     Active Substance: AMPHETAMINE
     Indication: PRODUCT USED FOR UNKNOWN INDICATION
     Route: 065
  47. ATORVASTATIN [Suspect]
     Active Substance: ATORVASTATIN
     Indication: HYPERLIPIDAEMIA
     Route: 065
  48. TACROLIMUS. [Suspect]
     Active Substance: TACROLIMUS
     Indication: IMMUNOSUPPRESSION
     Route: 065
  49. PILSICAINIDE [Suspect]
     Active Substance: PILSICAINIDE
     Indication: ARRHYTHMIA
     Route: 042
  50. FAMOTIDINE. [Suspect]
     Active Substance: FAMOTIDINE
     Indication: ULCER
     Route: 042
  51. ITRACONAZOLE. [Suspect]
     Active Substance: ITRACONAZOLE
     Indication: BACTERIAL INFECTION
     Route: 065
  52. SULPIRIDE [Suspect]
     Active Substance: SULPIRIDE
     Indication: PSYCHOTIC DISORDER
     Route: 048
  53. CITALOPRAM [Suspect]
     Active Substance: CITALOPRAM HYDROBROMIDE
     Indication: PSYCHOTIC DISORDER
     Route: 065
  54. SERTRALINE [Suspect]
     Active Substance: SERTRALINE HYDROCHLORIDE
     Indication: PSYCHOTIC DISORDER
     Route: 065
  55. CIPROFLOXACIN. [Suspect]
     Active Substance: CIPROFLOXACIN
     Indication: ANTIBIOTIC PROPHYLAXIS
     Route: 065
  56. CLARITHROMYCIN. [Suspect]
     Active Substance: CLARITHROMYCIN
     Indication: ANTIBIOTIC PROPHYLAXIS
     Route: 048
  57. COTRIMOXAZOLE [Suspect]
     Active Substance: SULFAMETHOXAZOLE\TRIMETHOPRIM
     Indication: ANTIBIOTIC PROPHYLAXIS
     Route: 065
  58. GATIFLOXACIN. [Suspect]
     Active Substance: GATIFLOXACIN
     Indication: ANTIBIOTIC PROPHYLAXIS
     Route: 065
  59. CRIZOTINIB [Suspect]
     Active Substance: CRIZOTINIB
     Indication: NEOPLASM MALIGNANT
     Route: 065
  60. PAZOPANIB [Suspect]
     Active Substance: PAZOPANIB
     Indication: NEOPLASM MALIGNANT
     Route: 065
  61. CIMETIDINE [Suspect]
     Active Substance: CIMETIDINE
     Indication: ULCER
     Route: 065
  62. ORCIPRENALINE [Suspect]
     Active Substance: METAPROTERENOL
     Indication: ASTHMA
     Route: 065
  63. DOLASETRON [Suspect]
     Active Substance: DOLASETRON
     Indication: VOMITING
     Route: 065
  64. PSEUDOEPHEDRINE [Suspect]
     Active Substance: PSEUDOEPHEDRINE
     Indication: NASOPHARYNGITIS
     Route: 065
  65. ATAZANAVIR [Suspect]
     Active Substance: ATAZANAVIR
     Indication: RETROVIRAL INFECTION
     Route: 065
  66. ATOMOXETINE [Suspect]
     Active Substance: ATOMOXETINE
     Indication: ATTENTION DEFICIT/HYPERACTIVITY DISORDER
     Route: 065
  67. PHENYLEPHRINE [Suspect]
     Active Substance: PHENYLEPHRINE\PHENYLEPHRINE HYDROCHLORIDE
     Indication: PRODUCT USED FOR UNKNOWN INDICATION
     Route: 065
  68. HALOPERIDOL. [Suspect]
     Active Substance: HALOPERIDOL
     Indication: PSYCHOTIC DISORDER
     Route: 042
  69. PILSICAINIDE [Suspect]
     Active Substance: PILSICAINIDE
     Indication: ARRHYTHMIA
     Route: 048
  70. AMITRIPTYLINE [Suspect]
     Active Substance: AMITRIPTYLINE
     Indication: PSYCHOTIC DISORDER
     Route: 065
  71. NORTRIPTYLINE [Suspect]
     Active Substance: NORTRIPTYLINE
     Indication: PSYCHOTIC DISORDER
     Route: 065
  72. MOXIFLOXACIN. [Suspect]
     Active Substance: MOXIFLOXACIN
     Indication: ANTIBIOTIC PROPHYLAXIS
     Route: 048
  73. PHENYTOIN. [Suspect]
     Active Substance: PHENYTOIN
     Indication: SEIZURE
     Route: 065
  74. PHENYLPROPANOLAMINE [Suspect]
     Active Substance: PHENYLPROPANOLAMINE
     Indication: NASOPHARYNGITIS
     Route: 065
  75. MIDODRINE [Suspect]
     Active Substance: MIDODRINE
     Indication: HYPOTENSION
     Route: 065
  76. VARDENAFIL [Suspect]
     Active Substance: VARDENAFIL
     Indication: PRODUCT USED FOR UNKNOWN INDICATION
     Route: 065
  77. HALOPERIDOL. [Suspect]
     Active Substance: HALOPERIDOL
     Indication: PSYCHOTIC DISORDER
     Route: 030
  78. KETOCONAZOLE. [Suspect]
     Active Substance: KETOCONAZOLE
     Indication: BACTERIAL INFECTION
     Route: 065
  79. ZIPRASIDONE. [Suspect]
     Active Substance: ZIPRASIDONE
     Indication: PSYCHOTIC DISORDER
     Route: 065
  80. VENLAFAXINE [Suspect]
     Active Substance: VENLAFAXINE HYDROCHLORIDE
     Indication: PSYCHOTIC DISORDER
     Route: 065
  81. OCTREOTIDE. [Suspect]
     Active Substance: OCTREOTIDE
     Indication: NEOPLASM MALIGNANT
     Route: 065
  82. FLECAINIDE [Suspect]
     Active Substance: FLECAINIDE
     Indication: ARRHYTHMIA
     Route: 048
  83. INDAPAMIDE. [Suspect]
     Active Substance: INDAPAMIDE
     Indication: URINE ANALYSIS ABNORMAL
     Route: 065
  84. DISOPYRAMIDE [Suspect]
     Active Substance: DISOPYRAMIDE
     Indication: ARRHYTHMIA
     Route: 042
  85. GALANTAMINE. [Suspect]
     Active Substance: GALANTAMINE
     Indication: DEMENTIA ALZHEIMER^S TYPE
     Route: 065
  86. METHYLPHENIDATE. [Suspect]
     Active Substance: METHYLPHENIDATE
     Indication: NARCOLEPSY
     Route: 065
  87. QUINIDINE [Suspect]
     Active Substance: QUINIDINE
     Indication: ARRHYTHMIA
     Route: 065
  88. EPINEPHRINE. [Suspect]
     Active Substance: EPINEPHRINE
     Indication: CARDIAC FAILURE
     Route: 065
  89. QUETIAPINE. [Suspect]
     Active Substance: QUETIAPINE
     Indication: PSYCHOTIC DISORDER
     Route: 065
  90. THIORIDAZINE [Suspect]
     Active Substance: THIORIDAZINE
     Indication: PSYCHOTIC DISORDER
     Route: 065
  91. DESIPRAMINE [Suspect]
     Active Substance: DESIPRAMINE
     Indication: PSYCHOTIC DISORDER
     Route: 065
  92. IMIPRAMINE [Suspect]
     Active Substance: IMIPRAMINE
     Indication: PSYCHOTIC DISORDER
     Route: 065
  93. ARIPIPRAZOLE. [Suspect]
     Active Substance: ARIPIPRAZOLE
     Indication: PSYCHOTIC DISORDER
     Route: 065
  94. CIBENZOLINE [Suspect]
     Active Substance: CIFENLINE
     Indication: ARRHYTHMIA
     Route: 048
  95. TAMOXIFEN [Suspect]
     Active Substance: TAMOXIFEN
     Indication: NEOPLASM MALIGNANT
     Route: 065
  96. FAMOTIDINE. [Suspect]
     Active Substance: FAMOTIDINE
     Indication: ULCER
     Route: 048
  97. LAMOTRIGINE. [Suspect]
     Active Substance: LAMOTRIGINE
     Indication: SEIZURE
     Route: 065
  98. SALMETEROL [Suspect]
     Active Substance: SALMETEROL
     Indication: ASTHMA
     Route: 065
  99. TERBUTALINE [Suspect]
     Active Substance: TERBUTALINE
     Indication: ASTHMA
     Route: 065
  100. ONDANSETRON [Suspect]
     Active Substance: ONDANSETRON
     Indication: VOMITING
     Route: 065
  101. EPHEDRINE. [Suspect]
     Active Substance: EPHEDRINE
     Indication: NASOPHARYNGITIS
     Route: 065
  102. ISRADIPINE. [Suspect]
     Active Substance: ISRADIPINE
     Indication: HYPERTENSION
     Route: 065
  103. METHADONE [Suspect]
     Active Substance: METHADONE HYDROCHLORIDE
     Indication: CANCER PAIN
     Route: 065
  104. APRINDINE [Suspect]
     Active Substance: APRINDINE
     Indication: ARRHYTHMIA
     Route: 048
  105. RISPERIDONE. [Suspect]
     Active Substance: RISPERIDONE
     Indication: PSYCHOTIC DISORDER
     Route: 048
  106. SOTALOL. [Suspect]
     Active Substance: SOTALOL
     Indication: ARRHYTHMIA
     Route: 065
  107. BEPRIDIL [Suspect]
     Active Substance: BEPRIDIL
     Indication: ARRHYTHMIA
     Route: 048
  108. LITHIUM. [Suspect]
     Active Substance: LITHIUM
     Indication: MANIA
     Route: 065
  109. LEVOMEPROMAZINE [Suspect]
     Active Substance: LEVOMEPROMAZINE
     Indication: PSYCHOTIC DISORDER
     Route: 065
  110. FLUOXETINE [Suspect]
     Active Substance: FLUOXETINE HYDROCHLORIDE
     Indication: PSYCHOTIC DISORDER
     Route: 065
  111. PAROXETINE. [Suspect]
     Active Substance: PAROXETINE
     Indication: PSYCHOTIC DISORDER
     Route: 048
  112. AZITHROMYCIN ANHYDROUS. [Suspect]
     Active Substance: AZITHROMYCIN ANHYDROUS
     Indication: ANTIBIOTIC PROPHYLAXIS
     Route: 065
  113. DISOPYRAMIDE [Suspect]
     Active Substance: DISOPYRAMIDE
     Indication: ARRHYTHMIA
     Route: 048
  114. OFLOXACIN. [Suspect]
     Active Substance: OFLOXACIN
     Indication: ANTIBIOTIC PROPHYLAXIS
     Route: 065
  115. PENTAMIDINE [Suspect]
     Active Substance: PENTAMIDINE
     Indication: ANTIBIOTIC PROPHYLAXIS
     Route: 065
  116. VORICONAZOLE. [Suspect]
     Active Substance: VORICONAZOLE
     Indication: ANTIBIOTIC PROPHYLAXIS
     Route: 065
  117. DASATINIB [Suspect]
     Active Substance: DASATINIB
     Indication: NEOPLASM MALIGNANT
     Route: 065
  118. AMANTADINE [Suspect]
     Active Substance: AMANTADINE
     Indication: PARKINSON^S DISEASE
     Route: 065
  119. CHLORAL HYDRATE [Suspect]
     Active Substance: CHLORAL HYDRATE
     Indication: SEDATION
     Route: 065
  120. TERFENADINE [Suspect]
     Active Substance: TERFENADINE
     Indication: HYPERSENSITIVITY
     Route: 065
  121. TIZANIDINE. [Suspect]
     Active Substance: TIZANIDINE
     Indication: MUSCLE RELAXANT THERAPY
     Route: 065
  122. FLECAINIDE [Suspect]
     Active Substance: FLECAINIDE
     Indication: ARRHYTHMIA
     Route: 042
  123. DIGOXIN. [Suspect]
     Active Substance: DIGOXIN
     Indication: CARDIAC FAILURE
     Route: 042

REACTIONS (1)
  - Long QT syndrome [Unknown]
